FAERS Safety Report 12426339 (Version 2)
Quarter: 2016Q3

REPORT INFORMATION
  Report Type: Spontaneous
  Country: US (occurrence: US)
  Receive Date: 20160601
  Receipt Date: 20160715
  Transmission Date: 20161109
  Serious: No
  Sender: FDA-Public Use
  Company Number: US-GLAXOSMITHKLINE-US2016069584

PATIENT
  Age: 66 Year
  Sex: Female

DRUGS (6)
  1. FUROSEMIDE. [Concomitant]
     Active Substance: FUROSEMIDE
  2. WARFARIN [Concomitant]
     Active Substance: WARFARIN
  3. METOPROLOL. [Concomitant]
     Active Substance: METOPROLOL
  4. ATORVASTATIN [Concomitant]
     Active Substance: ATORVASTATIN
  5. BREO ELLIPTA [Suspect]
     Active Substance: FLUTICASONE FUROATE\VILANTEROL TRIFENATATE
     Indication: DYSPNOEA
     Dosage: 1 PUFF(S), QD
     Route: 055
     Dates: start: 20160329
  6. KLOR-CON [Concomitant]
     Active Substance: POTASSIUM CHLORIDE

REACTIONS (5)
  - Drug dose omission [Unknown]
  - Product quality issue [Unknown]
  - Drug ineffective [Recovered/Resolved]
  - Underdose [Unknown]
  - Dyspnoea [Recovered/Resolved]

NARRATIVE: CASE EVENT DATE: 201604
